FAERS Safety Report 9255722 (Version 6)
Quarter: 2015Q1

REPORT INFORMATION
  Report Type: Spontaneous
  Country: US (occurrence: US)
  Receive Date: 20130425
  Receipt Date: 20150310
  Transmission Date: 20150721
  Serious: Yes (Other)
  Sender: FDA-Public Use
  Company Number: US-009507513-1304USA014194

PATIENT
  Sex: Male
  Weight: 78.46 kg

DRUGS (6)
  1. FINASTERIDE. [Suspect]
     Active Substance: FINASTERIDE
     Indication: ANDROGENETIC ALOPECIA
     Dosage: 1 MG, QD
     Route: 048
  2. SINGULAIR [Concomitant]
     Active Substance: MONTELUKAST SODIUM
     Indication: ASTHMA
     Dosage: 10 MG, UNK
     Route: 048
     Dates: start: 2004, end: 2010
  3. PROPECIA [Suspect]
     Active Substance: FINASTERIDE
     Indication: ANDROGENETIC ALOPECIA
     Dosage: 1 MG, QD
     Route: 048
     Dates: start: 20071026
  4. SPIRIVA [Concomitant]
     Active Substance: TIOTROPIUM BROMIDE MONOHYDRATE
     Indication: ASTHMA
     Dosage: 18 MICROGRAM, QD
     Route: 055
     Dates: start: 2005, end: 2011
  5. FINASTERIDE. [Suspect]
     Active Substance: FINASTERIDE
     Indication: ANDROGENETIC ALOPECIA
     Dosage: 5 MG, UNK
     Route: 048
     Dates: start: 20080429, end: 201003
  6. ASMANEX [Concomitant]
     Active Substance: MOMETASONE FUROATE
     Indication: ASTHMA
     Dosage: 2 DF, BID
     Route: 055
     Dates: start: 2004, end: 2009

REACTIONS (40)
  - Organic erectile dysfunction [Not Recovered/Not Resolved]
  - Cushingoid [Unknown]
  - Fatigue [Unknown]
  - Anxiety [Unknown]
  - Terminal dribbling [Unknown]
  - Stress [Unknown]
  - Fibromyalgia [Unknown]
  - Eye disorder [Unknown]
  - Drug eruption [Unknown]
  - Ejaculation failure [Unknown]
  - Ankle arthroplasty [Unknown]
  - Drug administration error [Unknown]
  - Androgen deficiency [Unknown]
  - Sleep apnoea syndrome [Unknown]
  - Hypogonadism [Unknown]
  - Depression [Unknown]
  - Loss of libido [Unknown]
  - Hydrocele [Unknown]
  - Feeling abnormal [Unknown]
  - Cough [Unknown]
  - Proteinuria [Unknown]
  - Cognitive disorder [Recovering/Resolving]
  - Gastrooesophageal reflux disease [Unknown]
  - Lipoma [Unknown]
  - Epididymal tenderness [Unknown]
  - Gynaecomastia [Unknown]
  - Epididymal cyst [Unknown]
  - Muscle atrophy [Unknown]
  - Prostatitis [Unknown]
  - Sexually transmitted disease [Unknown]
  - Blood luteinising hormone decreased [Unknown]
  - Blood follicle stimulating hormone decreased [Unknown]
  - Weight increased [Unknown]
  - Dysphonia [Unknown]
  - Sexual dysfunction [Not Recovered/Not Resolved]
  - Hypercholesterolaemia [Unknown]
  - Drug eruption [Recovered/Resolved]
  - Drug ineffective [Unknown]
  - Male genital atrophy [Unknown]
  - Anogenital warts [Unknown]

NARRATIVE: CASE EVENT DATE: 20071026
